FAERS Safety Report 7915747-X (Version None)
Quarter: 2011Q4

REPORT INFORMATION
  Report Type: 
  Country: None (occurrence: None)
  Receive Date: 20111115
  Receipt Date: 20111031
  Transmission Date: 20120403
  Serious: Yes (Hospitalization, Other)
  Sender: FDA-Public Use
  Company Number: US-WATSON-2011-17487

PATIENT
  Age: 48 Year
  Sex: Male

DRUGS (4)
  1. BACLOFEN [Suspect]
     Indication: PRODUCT USED FOR UNKNOWN INDICATION
     Dosage: HALF-EMPTY BOTTLE, 2700 MG PRESCRIBED THE DAY BEFORE
  2. INSULIN [Suspect]
     Indication: MULTIPLE DRUG OVERDOSE
     Dosage: 21 U/KG/H
  3. NEBIVOLOL HCL [Suspect]
     Indication: PRODUCT USED FOR UNKNOWN INDICATION
     Dosage: 300 MG, SINGLE
  4. DIAZEPAM [Suspect]
     Indication: PRODUCT USED FOR UNKNOWN INDICATION
     Dosage: HALF-EMPTY BOTTLE, 75 MG PRESCRIBED THE DAY BEFORE

REACTIONS (6)
  - BRADYCARDIA [None]
  - SUICIDE ATTEMPT [None]
  - COMA SCALE ABNORMAL [None]
  - DRUG ADMINISTRATION ERROR [None]
  - CARDIAC ARREST [None]
  - OVERDOSE [None]
